FAERS Safety Report 7138778-9 (Version None)
Quarter: 2010Q4

REPORT INFORMATION
  Report Type: 
  Country: None (occurrence: None)
  Receive Date: 20101206
  Receipt Date: 20101202
  Transmission Date: 20110411
  Serious: No
  Sender: FDA-Public Use
  Company Number: US-ROXANE LABORATORIES, INC.-2010-RO-01579RO

PATIENT
  Sex: Female

DRUGS (2)
  1. FLUTICASONE PROPIONATE [Suspect]
     Indication: SINUS CONGESTION
     Route: 045
     Dates: start: 20101201, end: 20101201
  2. COUGH MEDICINE [Concomitant]
     Indication: COUGH

REACTIONS (1)
  - HEADACHE [None]
